FAERS Safety Report 6592935-9 (Version None)
Quarter: 2010Q1

REPORT INFORMATION
  Report Type: 
  Country: None (occurrence: None)
  Receive Date: 20100218
  Receipt Date: 20100218
  Transmission Date: 20100710
  Serious: No
  Sender: FDA-Public Use
  Company Number: None

PATIENT
  Age: 65 Year
  Sex: Male
  Weight: 91.173 kg

DRUGS (8)
  1. ATENOLOL [Suspect]
     Dosage: 50MG DAY PO
     Route: 048
  2. RISPERIDONE [Concomitant]
  3. ASPIRIN [Concomitant]
  4. MULTI-VITAMIN [Concomitant]
  5. LITHIUM [Concomitant]
  6. RISP M-TABS [Concomitant]
  7. VITAMIN B-12 [Concomitant]
  8. RISP CONSTA [Concomitant]

REACTIONS (1)
  - HEART RATE DECREASED [None]
